FAERS Safety Report 4815373-5 (Version None)
Quarter: 2005Q4

REPORT INFORMATION
  Report Type: 
  Country: None (occurrence: None)
  Receive Date: 20051027
  Receipt Date: 20051021
  Transmission Date: 20060501
  Serious: Yes (Other)
  Sender: FDA-Public Use
  Company Number: KII-2005-0019258

PATIENT

DRUGS (1)
  1. OXYCODONE HCL [Suspect]
     Dosage: ORAL
     Route: 048

REACTIONS (1)
  - COMA [None]
